FAERS Safety Report 5766883-8 (Version None)
Quarter: 2008Q2

REPORT INFORMATION
  Report Type: 
  Country: None (occurrence: None)
  Receive Date: 20080612
  Receipt Date: 20080602
  Transmission Date: 20081010
  Serious: Yes (Hospitalization, Other)
  Sender: FDA-Public Use
  Company Number: AU-ELI_LILLY_AND_COMPANY-AU200804005606

PATIENT
  Age: 54 Year
  Sex: Male

DRUGS (6)
  1. ALIMTA [Suspect]
     Indication: PLEURAL MESOTHELIOMA MALIGNANT
     Dosage: 500 MG/M2, UNKNOWN
     Route: 065
  2. ALIMTA [Suspect]
     Dosage: UNK, 40% OF ORIGINAL DOSE
     Route: 065
  3. CARBOPLATIN [Concomitant]
     Dosage: 600 MG, UNKNOWN
     Route: 065
  4. VITAMINS [Concomitant]
     Dosage: UNK, UNKNOWN
     Route: 065
  5. VITAMIN B [Concomitant]
     Dosage: UNK, UNKNOWN
     Route: 065
  6. FOLIC ACID [Concomitant]
     Dosage: UNK, UNKNOWN
     Route: 065

REACTIONS (2)
  - BONE MARROW FAILURE [None]
  - NEUTROPENIC COLITIS [None]
